FAERS Safety Report 17346840 (Version 2)
Quarter: 2020Q3

REPORT INFORMATION
  Report Type: Spontaneous
  Country: US (occurrence: US)
  Receive Date: 20200130
  Receipt Date: 20200909
  Transmission Date: 20201102
  Serious: Yes (Other)
  Sender: FDA-Public Use
  Company Number: US-GILEAD-2020-0448756

PATIENT
  Age: 40 Year
  Sex: Female
  Weight: 87.53 kg

DRUGS (37)
  1. SUSTIVA [Concomitant]
     Active Substance: EFAVIRENZ
  2. RALTEGRAVIR. [Concomitant]
     Active Substance: RALTEGRAVIR
  3. AZITHROMYCIN ANHYDROUS. [Concomitant]
     Active Substance: AZITHROMYCIN ANHYDROUS
  4. DOXYCYCLINE. [Concomitant]
     Active Substance: DOXYCYCLINE
  5. PROPOXYPHENE?N [Concomitant]
     Active Substance: PROPOXYPHENE HYDROCHLORIDE
  6. VIREAD [Suspect]
     Active Substance: TENOFOVIR DISOPROXIL FUMARATE
     Indication: HIV INFECTION
     Dosage: UNK
     Route: 048
     Dates: start: 2003, end: 20100601
  7. RENVELA [Concomitant]
     Active Substance: SEVELAMER CARBONATE
  8. SENSIPAR [Concomitant]
     Active Substance: CINACALCET HYDROCHLORIDE
  9. LISINOPRIL. [Concomitant]
     Active Substance: LISINOPRIL
  10. DOCUSATE SODIUM. [Concomitant]
     Active Substance: DOCUSATE SODIUM
  11. COREG [Concomitant]
     Active Substance: CARVEDILOL
  12. ISENTRESS [Concomitant]
     Active Substance: RALTEGRAVIR POTASSIUM
  13. NORVIR [Concomitant]
     Active Substance: RITONAVIR
  14. TIVICAY [Concomitant]
     Active Substance: DOLUTEGRAVIR SODIUM
  15. VIRAMUNE [Concomitant]
     Active Substance: NEVIRAPINE
  16. CIPROFLOXACIN. [Concomitant]
     Active Substance: CIPROFLOXACIN
  17. RENAGEL [Concomitant]
     Active Substance: SEVELAMER HYDROCHLORIDE
  18. PERPHENAZINE. [Concomitant]
     Active Substance: PERPHENAZINE
  19. DARUNAVIR [Concomitant]
     Active Substance: DARUNAVIR
  20. ZIDOVUDINE. [Concomitant]
     Active Substance: ZIDOVUDINE
  21. DIOVAN [Concomitant]
     Active Substance: VALSARTAN
  22. RETROVIR [Concomitant]
     Active Substance: ZIDOVUDINE
  23. KEFLEX [Concomitant]
     Active Substance: CEPHALEXIN
  24. APAP [Concomitant]
     Active Substance: ACETAMINOPHEN
  25. ZOLPIDEM TARTRATE. [Concomitant]
     Active Substance: ZOLPIDEM TARTRATE
  26. NEPHRO VITE RX [Concomitant]
     Active Substance: ASCORBIC ACID\BIOTIN\CALCIUM PANTOTHENATE\CYANOCOBALAMIN\FOLIC ACID\NIACINAMIDE\PYRIDOXINE HYDROCHLORIDE\RIBOFLAVIN\THIAMINE MONONITRATE
  27. NORVASC [Concomitant]
     Active Substance: AMLODIPINE BESYLATE
  28. ISENTRESS [Concomitant]
     Active Substance: RALTEGRAVIR POTASSIUM
  29. SULFAMETHOXAZOLE [Concomitant]
     Active Substance: SULFAMETHOXAZOLE
  30. TRIMETHOPRIM SULFAMETHOXAZOLE [Concomitant]
     Active Substance: SULFAMETHOXAZOLE\TRIMETHOPRIM
  31. SEROQUEL [Concomitant]
     Active Substance: QUETIAPINE FUMARATE
  32. EPIVIR [Concomitant]
     Active Substance: LAMIVUDINE
  33. PREZISTA [Concomitant]
     Active Substance: DARUNAVIR ETHANOLATE
  34. AMLODIPINE BESYLATE. [Concomitant]
     Active Substance: AMLODIPINE BESYLATE
  35. CARVEDILOL. [Concomitant]
     Active Substance: CARVEDILOL
  36. FAMOTIDINE. [Concomitant]
     Active Substance: FAMOTIDINE
  37. FLUCONAZOLE. [Concomitant]
     Active Substance: FLUCONAZOLE

REACTIONS (8)
  - Depression [Not Recovered/Not Resolved]
  - Economic problem [Not Recovered/Not Resolved]
  - Emotional distress [Not Recovered/Not Resolved]
  - Anhedonia [Not Recovered/Not Resolved]
  - Bone density decreased [Not Recovered/Not Resolved]
  - Pain [Not Recovered/Not Resolved]
  - End stage renal disease [Not Recovered/Not Resolved]
  - Anxiety [Not Recovered/Not Resolved]

NARRATIVE: CASE EVENT DATE: 200705
